FAERS Safety Report 6877057-1 (Version None)
Quarter: 2010Q3

REPORT INFORMATION
  Report Type: 
  Country: None (occurrence: None)
  Receive Date: 20100727
  Receipt Date: 20100721
  Transmission Date: 20110219
  Serious: Yes (Other)
  Sender: FDA-Public Use
  Company Number: IT-ABBOTT-10P-083-0650412-00

PATIENT
  Sex: Female

DRUGS (10)
  1. HUMIRA [Suspect]
     Indication: RHEUMATOID ARTHRITIS
     Route: 058
     Dates: start: 20050629
  2. COMMERCIAL HUMIRA [Concomitant]
     Indication: RHEUMATOID ARTHRITIS
     Route: 058
     Dates: start: 20040920
  3. METHOTREXATE [Concomitant]
     Indication: RHEUMATOID ARTHRITIS
     Route: 058
     Dates: start: 19980615
  4. PANTOPAN [Concomitant]
     Indication: GASTROOESOPHAGEAL REFLUX DISEASE
     Route: 048
     Dates: start: 20010701
  5. FLANTADIN [Concomitant]
     Indication: RHEUMATOID ARTHRITIS
     Route: 048
     Dates: start: 20020615
  6. FLANTADIN [Concomitant]
     Route: 048
     Dates: start: 20040831
  7. INDERAL [Concomitant]
     Indication: EXTRASYSTOLES
     Route: 048
     Dates: start: 20021215
  8. DIFOSFONAL [Concomitant]
     Indication: OSTEOPOROSIS
     Route: 058
     Dates: start: 20040312
  9. MACULAR [Concomitant]
     Indication: MACULOPATHY
     Route: 048
     Dates: start: 20040317
  10. PARACETAMOL [Concomitant]
     Indication: WRIST SURGERY
     Route: 048
     Dates: start: 20041015

REACTIONS (1)
  - PULMONARY HYPERTENSION [None]
